FAERS Safety Report 6324144-2 (Version None)
Quarter: 2009Q3

REPORT INFORMATION
  Report Type: 
  Country: None (occurrence: None)
  Receive Date: 20090824
  Receipt Date: 20090527
  Transmission Date: 20100115
  Serious: No
  Sender: FDA-Public Use
  Company Number: US-ABBOTT-09P-163-0576347-00

PATIENT
  Sex: Male
  Weight: 88.076 kg

DRUGS (3)
  1. NIASPAN [Suspect]
     Indication: HIGH DENSITY LIPOPROTEIN DECREASED
     Dates: start: 20090501
  2. LOVASTATIN [Concomitant]
     Indication: HIGH DENSITY LIPOPROTEIN DECREASED
     Dates: start: 20090401
  3. HYDROCHLOROTHIAZIDE [Concomitant]
     Indication: HYPERTENSION
     Dates: start: 20081201

REACTIONS (7)
  - DISORIENTATION [None]
  - EXCORIATION [None]
  - FLUSHING [None]
  - LOSS OF CONSCIOUSNESS [None]
  - ORAL PAIN [None]
  - PARANASAL SINUS HYPERSECRETION [None]
  - SNEEZING [None]
